FAERS Safety Report 23128692 (Version 1)
Quarter: 2023Q4

REPORT INFORMATION
  Report Type: Report from Study
  Country: IT (occurrence: IT)
  Receive Date: 20231031
  Receipt Date: 20231031
  Transmission Date: 20240110
  Serious: Yes (Death, Other)
  Sender: FDA-Public Use
  Company Number: IT-SA-2018SA231417

PATIENT
  Age: 68 Year

DRUGS (3)
  1. IRINOTECAN [Suspect]
     Active Substance: IRINOTECAN
     Indication: Ductal adenocarcinoma of pancreas
     Dosage: UNK UNK, Q4W, 120-140-160 MG/M2
  2. OXALIPLATIN [Suspect]
     Active Substance: OXALIPLATIN
     Indication: Ductal adenocarcinoma of pancreas
     Dosage: UNK UNK, Q4W, 70-80 MG/M2
  3. FLUOROURACIL [Suspect]
     Active Substance: FLUOROURACIL
     Indication: Ductal adenocarcinoma of pancreas
     Dosage: UNK UNK, Q4W, 750-800-900 MG/M2

REACTIONS (10)
  - Thrombocytopenia [Fatal]
  - Neutropenia [Fatal]
  - Hypokalaemia [Fatal]
  - Toxicity to various agents [Fatal]
  - Mucosal inflammation [Fatal]
  - Diarrhoea [Fatal]
  - Anaemia [Fatal]
  - Asthenia [Fatal]
  - Hypoalbuminaemia [Fatal]
  - Hypercreatininaemia [Fatal]
